FAERS Safety Report 25407359 (Version 1)
Quarter: 2025Q2

REPORT INFORMATION
  Report Type: Spontaneous
  Country: US (occurrence: US)
  Receive Date: 20250606
  Receipt Date: 20250606
  Transmission Date: 20250716
  Serious: Yes (Death)
  Sender: JOHNSON AND JOHNSON
  Company Number: US-JNJFOC-20250604115

PATIENT
  Age: 75 Year
  Sex: Male
  Weight: 114.0 kg

DRUGS (1)
  1. CARVYKTI [Suspect]
     Active Substance: CILTACABTAGENE AUTOLEUCEL
     Indication: Plasma cell myeloma
     Route: 065
     Dates: start: 20241118, end: 20241118

REACTIONS (13)
  - Acute respiratory failure [Fatal]
  - Atelectasis [Fatal]
  - Cardiac failure congestive [Fatal]
  - Cardiomegaly [Fatal]
  - Cytokine release syndrome [Fatal]
  - Dyspnoea [Fatal]
  - General physical health deterioration [Fatal]
  - Neurotoxicity [Fatal]
  - Oxygen consumption increased [Fatal]
  - Peripheral sensory neuropathy [Fatal]
  - Phrenic nerve paralysis [Fatal]
  - Pneumonia [Fatal]
  - Pulmonary oedema [Fatal]

NARRATIVE: CASE EVENT DATE: 20241215
